FAERS Safety Report 9703596 (Version 3)
Quarter: 2014Q1

REPORT INFORMATION
  Report Type: Spontaneous
  Country: US (occurrence: US)
  Receive Date: 20131122
  Receipt Date: 20140123
  Transmission Date: 20141002
  Serious: No
  Sender: FDA-Public Use
  Company Number: US-PFIZER INC-2013330024

PATIENT
  Age: 59 Year
  Sex: Male
  Weight: 172 kg

DRUGS (12)
  1. TIKOSYN [Suspect]
     Indication: ATRIAL FIBRILLATION
     Dosage: 250 UG, 2X/DAY
     Route: 048
     Dates: start: 201309
  2. NORVASC [Concomitant]
     Indication: HYPERTENSION
     Dosage: UNK, 2X/DAY
  3. LANOXIN [Concomitant]
     Indication: CARDIAC DISORDER
     Dosage: 0.125 MG, 1X/DAY
  4. COUMADIN [Concomitant]
     Indication: ANTICOAGULANT THERAPY
     Dosage: 5 MG, 1X/DAY [TUESDAYS AND THURSDAYS]
     Route: 048
     Dates: start: 20130418
  5. COUMADIN [Concomitant]
     Dosage: 7.5 MG, 1X/DAY [ALL OTHER DAYS (EXCEPT TUESDAY AND THURSDAY)]
     Route: 048
     Dates: start: 20130418
  6. CRESTOR [Concomitant]
     Indication: BLOOD CHOLESTEROL INCREASED
     Dosage: 20 MG, 1X/DAY
  7. METHIMAZOLE [Concomitant]
     Indication: THYROID DISORDER
     Dosage: UNK
  8. LORTAB [Concomitant]
     Dosage: UNK
  9. LASIX [Concomitant]
     Dosage: UNK
  10. NITROSTAT [Concomitant]
     Dosage: UNK
  11. BENICAR HCT [Concomitant]
     Dosage: HYDROCHLOROTHIAZIDE (25MG), OLMESARTAN MEDOXOMIL (40 MG) [PER TABLET]
  12. BETAPACE [Concomitant]
     Dosage: 80 MG, UNK

REACTIONS (3)
  - Cough [Not Recovered/Not Resolved]
  - Oropharyngeal pain [Not Recovered/Not Resolved]
  - Influenza [Recovered/Resolved]
